FAERS Safety Report 5311779-9 (Version None)
Quarter: 2007Q2

REPORT INFORMATION
  Report Type: 
  Country: None (occurrence: None)
  Receive Date: 20070430
  Receipt Date: 20060220
  Transmission Date: 20071010
  Serious: No
  Sender: FDA-Public Use
  Company Number: 2006UW02817

PATIENT
  Age: 82 Year
  Sex: Female

DRUGS (3)
  1. NEXIUM [Suspect]
     Route: 048
  2. UNSPECIFIED THYROID MEDICATION [Concomitant]
  3. LASIX [Concomitant]

REACTIONS (2)
  - ANORECTAL DISORDER [None]
  - DIARRHOEA [None]
